FAERS Safety Report 11081615 (Version 8)
Quarter: 2015Q4

REPORT INFORMATION
  Report Type: Spontaneous
  Country: US (occurrence: US)
  Receive Date: 20150501
  Receipt Date: 20151221
  Transmission Date: 20160304
  Serious: Yes (Other)
  Sender: FDA-Public Use
  Company Number: US-PFIZER INC-2015144734

PATIENT
  Age: 73 Year
  Sex: Male
  Weight: 85 kg

DRUGS (13)
  1. ICAPS [Concomitant]
     Active Substance: MINERALS\VITAMINS
  2. OMEPRAZOLE. [Concomitant]
     Active Substance: OMEPRAZOLE
     Dosage: UNK
  3. INDAPAMIDE. [Concomitant]
     Active Substance: INDAPAMIDE
     Dosage: UNK
  4. LEVOTHYROXINE. [Concomitant]
     Active Substance: LEVOTHYROXINE
     Dosage: UNK
  5. ATENENOL [Concomitant]
     Dosage: UNK
  6. AMLODIPINE [Concomitant]
     Active Substance: AMLODIPINE BESYLATE
     Dosage: UNK
  7. LOSARTAN. [Concomitant]
     Active Substance: LOSARTAN
     Dosage: UNK
  8. SUTENT [Suspect]
     Active Substance: SUNITINIB MALATE
     Indication: RENAL CANCER STAGE IV
     Dosage: 50 MG, DAILY, CYCLIC (FOR 28 DAYS ON / 14 DAYS OFF)
     Route: 048
     Dates: start: 20141001, end: 20151122
  9. VITAMIN D3 [Concomitant]
     Active Substance: CHOLECALCIFEROL
     Dosage: UNK
  10. BABY ASPIRIN [Concomitant]
     Active Substance: ASPIRIN
     Dosage: UNK, TIW
  11. SODIUM BICARBONATE. [Concomitant]
     Active Substance: SODIUM BICARBONATE
     Dosage: UNK
  12. GLIPIZIDE. [Concomitant]
     Active Substance: GLIPIZIDE
     Dosage: UNK
  13. GEMFIBROZIL. [Concomitant]
     Active Substance: GEMFIBROZIL
     Dosage: UNK

REACTIONS (25)
  - Skin hypertrophy [Unknown]
  - Gastrointestinal pain [Unknown]
  - Sinusitis [Unknown]
  - Dysgeusia [Not Recovered/Not Resolved]
  - Palmar-plantar erythrodysaesthesia syndrome [Unknown]
  - Skin discomfort [Unknown]
  - Abdominal discomfort [Unknown]
  - Decreased appetite [Not Recovered/Not Resolved]
  - Skin fissures [Unknown]
  - Proctalgia [Recovering/Resolving]
  - Disease progression [Unknown]
  - Anal fissure [Recovering/Resolving]
  - Faeces soft [Unknown]
  - Blister [Unknown]
  - Weight decreased [Recovering/Resolving]
  - Hypertension [Unknown]
  - Ageusia [Not Recovered/Not Resolved]
  - Skin fragility [Unknown]
  - Photosensitivity reaction [Unknown]
  - Fatigue [Unknown]
  - Diarrhoea [Unknown]
  - Pancreatitis [Unknown]
  - Thyroid disorder [Unknown]
  - Frequent bowel movements [Unknown]
  - Renal cancer stage IV [Unknown]

NARRATIVE: CASE EVENT DATE: 201410
